FAERS Safety Report 15117984 (Version 2)
Quarter: 2018Q4

REPORT INFORMATION
  Report Type: Spontaneous
  Country: US (occurrence: US)
  Receive Date: 20180707
  Receipt Date: 20181216
  Transmission Date: 20190204
  Serious: No
  Sender: FDA-Public Use
  Company Number: US-JNJFOC-20180619948

PATIENT
  Sex: Male
  Weight: 83.92 kg

DRUGS (3)
  1. HUMALOG [Concomitant]
     Active Substance: INSULIN LISPRO
     Indication: TYPE 1 DIABETES MELLITUS
     Route: 050
     Dates: start: 2002
  2. FENTANYL. [Suspect]
     Active Substance: FENTANYL
     Indication: SYRINGOMYELIA
     Route: 062
     Dates: start: 2010, end: 2010
  3. FENTANYL. [Suspect]
     Active Substance: FENTANYL
     Indication: SYRINGOMYELIA
     Route: 062
     Dates: start: 2010, end: 2010

REACTIONS (1)
  - Drug ineffective [Recovered/Resolved]

NARRATIVE: CASE EVENT DATE: 2010
